FAERS Safety Report 12167042 (Version 1)
Quarter: 2016Q1

REPORT INFORMATION
  Report Type: Spontaneous
  Country: US (occurrence: None)
  Receive Date: 20160309
  Receipt Date: 20160309
  Transmission Date: 20160526
  Serious: Yes (Other)
  Sender: FDA-Public Use
  Company Number: None

PATIENT
  Age: 21 Year
  Sex: Male
  Weight: 0 kg

DRUGS (1)
  1. COPAXONE [Suspect]
     Active Substance: GLATIRAMER ACETATE
     Indication: PRODUCT USED FOR UNKNOWN INDICATION
     Dosage: SUBCUTANEOUS 057 40MG INJECTABLE THREE TIMES WEEKLY
     Route: 058
     Dates: start: 20140301

REACTIONS (3)
  - Memory impairment [None]
  - Tremor [None]
  - Condition aggravated [None]

NARRATIVE: CASE EVENT DATE: 20160308
